FAERS Safety Report 5373872-4 (Version None)
Quarter: 2007Q2

REPORT INFORMATION
  Report Type: 
  Country: None (occurrence: None)
  Receive Date: 20070628
  Receipt Date: 20070619
  Transmission Date: 20071010
  Serious: Yes (Other)
  Sender: FDA-Public Use
  Company Number: US-PFIZER INC-2007050265

PATIENT
  Sex: Female
  Weight: 62.272 kg

DRUGS (3)
  1. NORVASC [Suspect]
     Indication: HYPERTENSION
     Route: 048
     Dates: start: 19920101, end: 20010101
  2. NORVASC [Suspect]
     Dosage: DAILY DOSE:5MG
     Route: 048
  3. NORVASC [Suspect]
     Dosage: DAILY DOSE:10MG

REACTIONS (1)
  - BLOOD PRESSURE INADEQUATELY CONTROLLED [None]
